FAERS Safety Report 7612309-9 (Version None)
Quarter: 2011Q3

REPORT INFORMATION
  Report Type: 
  Country: None (occurrence: None)
  Receive Date: 20110715
  Receipt Date: 20110704
  Transmission Date: 20111222
  Serious: Yes (Hospitalization, Other)
  Sender: FDA-Public Use
  Company Number: PHHY2011DE50130

PATIENT
  Sex: Male
  Weight: 118 kg

DRUGS (9)
  1. ALLOPURINOL [Concomitant]
     Dosage: 300 MG, QD
     Route: 048
  2. SPIRONOLACTONE [Concomitant]
     Dosage: 50 MG, QD
     Route: 048
  3. SYMBICORT [Concomitant]
     Dosage: 160 DF, UNK
  4. TASIGNA [Suspect]
     Indication: CHRONIC MYELOID LEUKAEMIA
     Dosage: 600 MG, QD
     Route: 048
     Dates: start: 20110526, end: 20110607
  5. RAMIPRIL [Concomitant]
     Dosage: 5 MG, QD
     Route: 048
  6. METOPROLOL TARTRATE [Concomitant]
     Dosage: 50 MG, QD
     Route: 048
  7. XIPAMIDE [Concomitant]
     Dosage: 20 MG, QD
  8. FUROSEMIDE [Concomitant]
     Dosage: 40 MG, QD
  9. SIMVASTATIN [Concomitant]
     Dosage: 40 MG, QD

REACTIONS (8)
  - ELECTROCARDIOGRAM QT PROLONGED [None]
  - CARDIAC FAILURE [None]
  - CONGESTIVE CARDIOMYOPATHY [None]
  - LOCAL SWELLING [None]
  - DYSPNOEA [None]
  - HYPERTROPHY [None]
  - COUGH [None]
  - OEDEMA PERIPHERAL [None]
